FAERS Safety Report 5302467-3 (Version None)
Quarter: 2007Q1

REPORT INFORMATION
  Report Type: 
  Country: None (occurrence: None)
  Receive Date: 20070201
  Receipt Date: 20061128
  Transmission Date: 20070707
  Serious: No
  Sender: FDA-Public Use
  Company Number: 2006PV026019

PATIENT
  Age: 67 Year
  Sex: Female
  Weight: 121.564 kg

DRUGS (1)
  1. BYETTA [Suspect]
     Indication: HYPOGLYCAEMIA
     Dosage: 5 MCG;BID;SC
     Route: 058
     Dates: start: 20061001

REACTIONS (4)
  - BLOOD GLUCOSE INCREASED [None]
  - BLOOD TRIGLYCERIDES INCREASED [None]
  - NAUSEA [None]
  - WEIGHT DECREASED [None]
